FAERS Safety Report 7760171-6 (Version None)
Quarter: 2011Q3

REPORT INFORMATION
  Report Type: 
  Country: None (occurrence: None)
  Receive Date: 20110919
  Receipt Date: 20110909
  Transmission Date: 20111222
  Serious: No
  Sender: FDA-Public Use
  Company Number: JP-ASTRAZENECA-2011SE43323

PATIENT
  Age: 55 Year
  Sex: Female
  Weight: 39 kg

DRUGS (10)
  1. OXYCONTIN [Concomitant]
     Indication: CANCER PAIN
     Route: 048
     Dates: start: 20101013
  2. NAPROXEN [Concomitant]
     Indication: TUMOUR ASSOCIATED FEVER
     Route: 048
     Dates: start: 20080712
  3. FERROUS CITRATE [Concomitant]
     Indication: IRON DEFICIENCY ANAEMIA
     Route: 048
     Dates: start: 20090925, end: 20110506
  4. FERROUS CITRATE [Concomitant]
     Route: 048
     Dates: start: 20110819
  5. ACETAMINOPHEN [Concomitant]
     Indication: CANCER PAIN
     Route: 048
     Dates: start: 20080712
  6. MUCOSTA [Concomitant]
     Indication: PROPHYLAXIS AGAINST GASTROINTESTINAL ULCER
     Route: 048
     Dates: start: 20080712
  7. IRESSA [Suspect]
     Indication: LUNG ADENOCARCINOMA
     Route: 048
     Dates: start: 20110129, end: 20110704
  8. IRESSA [Suspect]
     Route: 048
     Dates: start: 20110902
  9. FAMOTIDINE [Concomitant]
     Indication: PROPHYLAXIS AGAINST GASTROINTESTINAL ULCER
     Route: 048
     Dates: start: 20091023
  10. OXINORM [Concomitant]
     Indication: CANCER PAIN
     Route: 048
     Dates: start: 20101013

REACTIONS (1)
  - ANAEMIA [None]
